FAERS Safety Report 6069010-5 (Version None)
Quarter: 2009Q1

REPORT INFORMATION
  Report Type: 
  Country: None (occurrence: None)
  Receive Date: 20090206
  Receipt Date: 20090202
  Transmission Date: 20090719
  Serious: No
  Sender: FDA-Public Use
  Company Number: US-ELI_LILLY_AND_COMPANY-US200812003820

PATIENT
  Sex: Male
  Weight: 102.95 kg

DRUGS (7)
  1. BYETTA [Suspect]
     Indication: TYPE 2 DIABETES MELLITUS
     Dosage: 5 UG, 2/D
     Route: 058
     Dates: start: 20080929, end: 20081001
  2. BYETTA [Suspect]
     Dosage: 10 UG, 2/D
     Route: 058
     Dates: start: 20081001
  3. AMLODIPINE [Concomitant]
     Dosage: 5 MG, DAILY (1/D)
  4. PRILOSEC [Concomitant]
     Dosage: 20 MG, DAILY (1/D)
  5. METFORMIN HCL [Concomitant]
     Dosage: 500 MG, 2/D
  6. GLIMEPIRIDE [Concomitant]
     Dosage: UNK, EACH EVENING
  7. OXYCODONE HCL [Concomitant]
     Dosage: UNK, AS NEEDED

REACTIONS (4)
  - DECREASED APPETITE [None]
  - DYSGEUSIA [None]
  - NAUSEA [None]
  - WEIGHT DECREASED [None]
